FAERS Safety Report 16307831 (Version 1)
Quarter: 2019Q2

REPORT INFORMATION
  Report Type: Spontaneous
  Country: AU (occurrence: AU)
  Receive Date: 20190514
  Receipt Date: 20190514
  Transmission Date: 20190711
  Serious: Yes (Other)
  Sender: FDA-Public Use
  Company Number: AU-TEVA-2019-AU-1049230

PATIENT
  Age: 26 Year

DRUGS (9)
  1. PREDNISOLONE. [Concomitant]
     Active Substance: PREDNISOLONE
     Dosage: 25 MILLIGRAM DAILY; ONGOING
  2. IMATINIB. [Suspect]
     Active Substance: IMATINIB MESYLATE
     Indication: TRANSPLANT
     Dosage: 200 MILLIGRAM DAILY;
     Route: 048
  3. BACTRIM [Concomitant]
     Active Substance: SULFAMETHOXAZOLE\TRIMETHOPRIM
     Dates: start: 201609
  4. CYCLOSPORIN [Concomitant]
     Active Substance: CYCLOSPORINE
     Dosage: ONGOING
  5. IBRUTINIB [Concomitant]
     Active Substance: IBRUTINIB
     Dosage: 420 MILLIGRAM DAILY; DISCONTINUED
  6. RITUXIMAB. [Concomitant]
     Active Substance: RITUXIMAB
     Dosage: 375MG/M2; DISCONTINUED
  7. PERINDOPRIL [Concomitant]
     Active Substance: PERINDOPRIL
     Dosage: 8 MILLIGRAM DAILY;
     Dates: start: 201901
  8. POSACONAZOLE [Concomitant]
     Active Substance: POSACONAZOLE
     Dosage: 300 MILLIGRAM DAILY;
     Dates: start: 201902
  9. VALACICLOVIR [Concomitant]
     Active Substance: VALACYCLOVIR HYDROCHLORIDE
     Dosage: 1000 MILLIGRAM DAILY;
     Dates: start: 201608

REACTIONS (3)
  - Myosclerosis [Unknown]
  - Osteonecrosis [Unknown]
  - Chronic graft versus host disease [Unknown]
